FAERS Safety Report 9881179 (Version 1)
Quarter: 2014Q1

REPORT INFORMATION
  Report Type: Spontaneous
  Country: US (occurrence: US)
  Receive Date: 20140207
  Receipt Date: 20140207
  Transmission Date: 20141002
  Serious: Yes (Hospitalization)
  Sender: FDA-Public Use
  Company Number: US-ASTRAZENECA-2014SE06876

PATIENT
  Sex: 0

DRUGS (2)
  1. BRILINTA [Suspect]
     Indication: PERCUTANEOUS CORONARY INTERVENTION
     Route: 048
  2. TRIPLE ANTIPLATELET THERAPY [Concomitant]

REACTIONS (1)
  - Dyspnoea [Unknown]
